FAERS Safety Report 5759975-0 (Version None)
Quarter: 2008Q2

REPORT INFORMATION
  Report Type: 
  Country: None (occurrence: None)
  Receive Date: 20080605
  Receipt Date: 20080527
  Transmission Date: 20081010
  Serious: Yes (Other)
  Sender: FDA-Public Use
  Company Number: CA-AMGEN-US276757

PATIENT
  Sex: Male

DRUGS (22)
  1. PANITUMUMAB [Suspect]
     Indication: COLORECTAL CANCER
     Route: 042
     Dates: start: 20071025
  2. OXALIPLATIN [Suspect]
     Route: 042
     Dates: start: 20071025
  3. FLUOROURACIL [Concomitant]
     Dates: start: 20071025
  4. LEUCOVORIN CALCIUM [Concomitant]
     Route: 042
     Dates: start: 20071025
  5. CRESTOR [Concomitant]
     Route: 048
     Dates: start: 20050101
  6. GEMFIBROZIL [Concomitant]
     Route: 048
     Dates: start: 20010101
  7. METFORMIN HCL [Concomitant]
     Route: 048
     Dates: start: 20000101
  8. FLOMAX [Concomitant]
     Route: 048
     Dates: start: 20050101
  9. VITAMIN B-12 [Concomitant]
     Route: 048
     Dates: start: 20070801
  10. TYLENOL W/ CODEINE NO. 3 [Concomitant]
     Route: 048
     Dates: start: 20070918
  11. PROCHLORPERAZINE [Concomitant]
     Route: 048
     Dates: start: 20071018
  12. KYTRIL [Concomitant]
     Route: 042
     Dates: start: 20071025
  13. DECADRON [Concomitant]
     Route: 042
     Dates: start: 20071025
  14. LACTULOSE [Concomitant]
     Dates: start: 20071102
  15. SENOKOT [Concomitant]
     Route: 048
     Dates: start: 20071101
  16. COLACE [Concomitant]
     Route: 048
     Dates: start: 20071106
  17. METAMUCIL [Concomitant]
  18. GLYCERIN [Concomitant]
     Dates: start: 20071111
  19. NEUPOGEN [Concomitant]
     Route: 058
     Dates: start: 20080211, end: 20080509
  20. LEVAQUIN [Concomitant]
     Route: 048
     Dates: start: 20080421, end: 20080427
  21. MINOCYCLINE HCL [Concomitant]
     Dates: start: 20080316, end: 20080317
  22. HYDROCORTISONE [Concomitant]
     Route: 061
     Dates: start: 20080316, end: 20080319

REACTIONS (1)
  - HYPERSENSITIVITY [None]
